FAERS Safety Report 7720839-4 (Version None)
Quarter: 2011Q3

REPORT INFORMATION
  Report Type: 
  Country: None (occurrence: None)
  Receive Date: 20110831
  Receipt Date: 20110817
  Transmission Date: 20111222
  Serious: Yes (Hospitalization)
  Sender: FDA-Public Use
  Company Number: DE-CELGENEUS-062-50794-11082079

PATIENT
  Age: 50 Year
  Sex: Female
  Weight: 68 kg

DRUGS (3)
  1. ETOPOSIDE [Suspect]
     Dosage: 175 MILLIGRAM
     Route: 065
     Dates: start: 20110810, end: 20110810
  2. IDARUBICIN HCL [Suspect]
     Dosage: 21 MILLIGRAM
     Route: 065
     Dates: start: 20110810, end: 20110810
  3. VIDAZA [Suspect]
     Route: 065
     Dates: start: 20110715, end: 20110720

REACTIONS (1)
  - HEPATOBILIARY DISEASE [None]
